FAERS Safety Report 5120847-6 (Version None)
Quarter: 2006Q4

REPORT INFORMATION
  Report Type: 
  Country: None (occurrence: None)
  Receive Date: 20061003
  Receipt Date: 20061003
  Transmission Date: 20070319
  Serious: Yes (Disabling)
  Sender: FDA-Public Use
  Company Number: None

PATIENT
  Age: 26 Year
  Sex: Female
  Weight: 58.9676 kg

DRUGS (4)
  1. PROZAC [Suspect]
     Indication: DEPRESSION
     Dosage: ONCE A DAY
     Dates: start: 19990901, end: 20000115
  2. . [Concomitant]
  3. HRT ESTROGEN CREAM [Concomitant]
  4. PROGESTERONE CREAM [Concomitant]

REACTIONS (14)
  - AMENORRHOEA [None]
  - EUPHORIC MOOD [None]
  - FEELING ABNORMAL [None]
  - FEMALE ORGASMIC DISORDER [None]
  - GENITAL DISORDER FEMALE [None]
  - HOT FLUSH [None]
  - INADEQUATE LUBRICATION [None]
  - INAPPROPRIATE AFFECT [None]
  - INSOMNIA [None]
  - NIGHT SWEATS [None]
  - PREMATURE MENOPAUSE [None]
  - SEXUAL DYSFUNCTION [None]
  - SKIN ATROPHY [None]
  - VULVOVAGINAL DRYNESS [None]
